FAERS Safety Report 7814840-X (Version None)
Quarter: 2011Q4

REPORT INFORMATION
  Report Type: 
  Country: None (occurrence: None)
  Receive Date: 20111014
  Receipt Date: 20111004
  Transmission Date: 20120403
  Serious: Yes (Hospitalization)
  Sender: FDA-Public Use
  Company Number: TR-ROCHE-801621

PATIENT
  Sex: Female
  Weight: 60 kg

DRUGS (1)
  1. MABTHERA [Suspect]
     Indication: LYMPHOMA
     Dosage: DOSE: 700 (UNIT: UNSPECIFIED), FREQUENCY: DAILY
     Route: 042

REACTIONS (1)
  - PANCREATITIS ACUTE [None]
